FAERS Safety Report 8287972-2 (Version None)
Quarter: 2012Q2

REPORT INFORMATION
  Report Type: 
  Country: None (occurrence: None)
  Receive Date: 20120411
  Receipt Date: 20120402
  Transmission Date: 20120825
  Serious: Yes (Life-Threatening, Other)
  Sender: FDA-Public Use
  Company Number: 2012P1011855

PATIENT
  Sex: Female

DRUGS (4)
  1. CITALOPRAM HYDROBROMIDE [Suspect]
  2. METOPROLOL (NO PREF. NAME) [Suspect]
  3. AMITRIPTYLINE HCL [Suspect]
  4. NIFEDIPINE [Suspect]

REACTIONS (4)
  - HYPOGLYCAEMIA [None]
  - CIRCULATORY COLLAPSE [None]
  - SHOCK [None]
  - CARDIOTOXICITY [None]
